FAERS Safety Report 7283075-4 (Version None)
Quarter: 2011Q1

REPORT INFORMATION
  Report Type: 
  Country: None (occurrence: None)
  Receive Date: 20110120
  Receipt Date: 20110111
  Transmission Date: 20110831
  Serious: Yes (Hospitalization)
  Sender: FDA-Public Use
  Company Number: M2011-002

PATIENT
  Age: 82 Year
  Sex: Male

DRUGS (13)
  1. ALTERNATE TENUIS, NSTD, GLY, [Suspect]
     Indication: HYPERSENSITIVITY
     Dosage: 0.02 ML, ONE TIME, INTRADER
     Dates: start: 20110110
  2. ALTERNATE TENUIS, NSTD, GLY, [Suspect]
     Indication: DIAGNOSTIC PROCEDURE
     Dosage: 0.02 ML, ONE TIME, INTRADER
     Dates: start: 20110110
  3. MITE D FARINAE, STD GLY [Suspect]
     Indication: DIAGNOSTIC PROCEDURE
     Dosage: 0.02 ML, ONE TIME, INTRADER
     Dates: start: 20110110
  4. MITE D FARINAE, STD GLY [Suspect]
     Indication: HYPERSENSITIVITY
     Dosage: 0.02 ML, ONE TIME, INTRADER
     Dates: start: 20110110
  5. EPICOCCUM NIGRUM [Suspect]
     Indication: HYPERSENSITIVITY
     Dosage: NTSD GLY 0.02 ML; ONE TIME, INTRADER
     Dates: start: 20110110
  6. EPICOCCUM NIGRUM [Suspect]
     Indication: DIAGNOSTIC PROCEDURE
     Dosage: NTSD GLY 0.02 ML; ONE TIME, INTRADER
     Dates: start: 20110110
  7. AP CAT HAIR, STD GLY [Suspect]
     Indication: DIAGNOSTIC PROCEDURE
     Dosage: 0.02 ML, ONE TIME; INTRADER
     Dates: start: 20110110
  8. AP CAT HAIR, STD GLY [Suspect]
     Indication: HYPERSENSITIVITY
     Dosage: 0.02 ML, ONE TIME; INTRADER
     Dates: start: 20110110
  9. ALLERGY MED [Concomitant]
  10. GRASS MX #7, STD GLY [Suspect]
     Indication: DIAGNOSTIC PROCEDURE
     Dosage: 0.02 ML, ONE TIME INTRADER
     Dates: start: 20110110
  11. GRASS MX #7, STD GLY [Suspect]
     Indication: HYPERSENSITIVITY
     Dosage: 0.02 ML, ONE TIME INTRADER
     Dates: start: 20110110
  12. DOG HAIR, NTSD GLY [Suspect]
     Indication: DIAGNOSTIC PROCEDURE
     Dosage: 0.02 ML, ONE TIME; INTRADER
     Dates: start: 20110110
  13. DOG HAIR, NTSD GLY [Suspect]
     Indication: HYPERSENSITIVITY
     Dosage: 0.02 ML, ONE TIME; INTRADER
     Dates: start: 20110110

REACTIONS (4)
  - LOSS OF CONSCIOUSNESS [None]
  - PRESYNCOPE [None]
  - MALAISE [None]
  - PARAESTHESIA [None]
